FAERS Safety Report 6716439-5 (Version None)
Quarter: 2010Q2

REPORT INFORMATION
  Report Type: 
  Country: None (occurrence: None)
  Receive Date: 20100507
  Receipt Date: 20100430
  Transmission Date: 20101027
  Serious: Yes (Hospitalization)
  Sender: FDA-Public Use
  Company Number: US-ROCHE-701104

PATIENT
  Sex: Female
  Weight: 77.1 kg

DRUGS (1)
  1. BEVACIZUMAB [Suspect]
     Indication: NON-SMALL CELL LUNG CANCER
     Dosage: START DATE OF CYCLE/COURSE ASSOCIATED WITH SAE: 26 APRIL 2010, TOTAL NUMBER OF CYCLE: 7
     Route: 065
     Dates: start: 20091211

REACTIONS (2)
  - CONFUSIONAL STATE [None]
  - LETHARGY [None]
